FAERS Safety Report 14751722 (Version 1)
Quarter: 2018Q2

REPORT INFORMATION
  Report Type: Spontaneous
  Country: ZA (occurrence: ZA)
  Receive Date: 20180412
  Receipt Date: 20180412
  Transmission Date: 20180711
  Serious: Yes (Other)
  Sender: FDA-Public Use
  Company Number: ZA-DRREDDYS-SAF/SAF/18/0097503

PATIENT
  Age: 58 Year
  Sex: Male

DRUGS (2)
  1. LAMITOR [Suspect]
     Active Substance: LAMOTRIGINE
     Indication: EPILEPSY
     Dosage: PATIENT WAS TAKING 550 MG (300 MG IN THE MORNING AND 250 MG IN THE AFTERNOON. ON THE 28/03/2018, HE
     Route: 048
  2. RIVOTRIL [Suspect]
     Active Substance: CLONAZEPAM
     Indication: PRODUCT USED FOR UNKNOWN INDICATION
     Route: 048

REACTIONS (2)
  - Generalised tonic-clonic seizure [Recovered/Resolved]
  - Petit mal epilepsy [Recovered/Resolved]

NARRATIVE: CASE EVENT DATE: 20180327
